FAERS Safety Report 10040598 (Version 1)
Quarter: 2014Q1

REPORT INFORMATION
  Report Type: Spontaneous
  Country: GB (occurrence: GB)
  Receive Date: 20140327
  Receipt Date: 20140327
  Transmission Date: 20141002
  Serious: Yes (Hospitalization)
  Sender: FDA-Public Use
  Company Number: GB-ACCORD-022636

PATIENT
  Age: 52 Year
  Sex: Male

DRUGS (8)
  1. GLICLAZIDE [Concomitant]
     Route: 048
  2. TRAMADOL [Concomitant]
  3. PERINDOPRIL/PERINDOPRIL ERBUMINE [Concomitant]
     Route: 048
  4. METFORMIN [Concomitant]
  5. FOLINIC ACID [Suspect]
     Indication: PANCREATIC CARCINOMA
  6. FLUOROURACIL [Suspect]
     Indication: PANCREATIC CARCINOMA
  7. IRINOTECAN [Suspect]
     Indication: PANCREATIC CARCINOMA
  8. OXALIPLATIN [Suspect]
     Indication: PANCREATIC CARCINOMA

REACTIONS (3)
  - Off label use [Unknown]
  - Influenza [Unknown]
  - Pneumocystis jirovecii pneumonia [Not Recovered/Not Resolved]
